FAERS Safety Report 10250741 (Version 1)
Quarter: 2014Q2

REPORT INFORMATION
  Report Type: Spontaneous
  Country: US (occurrence: US)
  Receive Date: 20140620
  Receipt Date: 20140620
  Transmission Date: 20141212
  Serious: No
  Sender: FDA-Public Use
  Company Number: US-TEVA-489571USA

PATIENT
  Sex: Female

DRUGS (8)
  1. NUVIGIL [Suspect]
  2. GILENYA [Suspect]
  3. BACLOFEN [Concomitant]
  4. VITAMINS B12 [Concomitant]
  5. VITAMIN E [Concomitant]
  6. VITAMIN D3 [Concomitant]
  7. IRON [Concomitant]
  8. ESTROVEN [Concomitant]

REACTIONS (2)
  - Drug ineffective [Unknown]
  - Fall [Unknown]
